FAERS Safety Report 8708610 (Version 3)
Quarter: 2012Q4

REPORT INFORMATION
  Report Type: 
  Country: JP (occurrence: JP)
  Receive Date: 20120806
  Receipt Date: 20120828
  Transmission Date: 20130627
  Serious: Yes (Other)
  Sender: FDA-Public Use
  Company Number: JP-ASTELLAS-2012JP007012

PATIENT
  Age: 58 Year
  Sex: Male

DRUGS (1)
  1. FUNGUARD [Suspect]
     Indication: CANDIDIASIS
     Dosage: 150 mg, UID/QD
     Route: 041
     Dates: start: 20120726, end: 20120726

REACTIONS (3)
  - Alanine aminotransferase increased [Unknown]
  - Peritoneal fluid analysis abnormal [Unknown]
  - Blood bilirubin increased [Unknown]
